FAERS Safety Report 15148777 (Version 3)
Quarter: 2018Q3

REPORT INFORMATION
  Report Type: Spontaneous
  Country: IT (occurrence: IT)
  Receive Date: 20180716
  Receipt Date: 20180801
  Transmission Date: 20181010
  Serious: Yes (Hospitalization)
  Sender: FDA-Public Use
  Company Number: IT-PFIZER INC-2018284334

PATIENT
  Age: 99 Year
  Sex: Female

DRUGS (6)
  1. LASIX [Suspect]
     Active Substance: FUROSEMIDE
     Dosage: 25 MG, DAILY
     Route: 065
  2. OLMESARTAN [Suspect]
     Active Substance: OLMESARTAN
     Dosage: 20 MG, DAILY
     Route: 065
  3. NITROGLYCERIN. [Suspect]
     Active Substance: NITROGLYCERIN
     Dosage: 5 MG, UNK
     Route: 062
  4. TRITTICO [Suspect]
     Active Substance: TRAZODONE HYDROCHLORIDE
     Dosage: 75 MG, DAILY
     Route: 065
  5. CARVEDILOL. [Suspect]
     Active Substance: CARVEDILOL
     Indication: HYPERTENSION
     Dosage: 6.25 MG, DAILY
     Route: 048
     Dates: start: 20170101, end: 20170607
  6. PRISMA /00390602/ [Suspect]
     Active Substance: MIANSERIN HYDROCHLORIDE
     Dosage: UNK
     Route: 065

REACTIONS (5)
  - Sinus bradycardia [Unknown]
  - Syncope [Unknown]
  - Fall [Unknown]
  - Medication error [Unknown]
  - Overdose [Unknown]

NARRATIVE: CASE EVENT DATE: 20170607
